FAERS Safety Report 12570415 (Version 1)
Quarter: 2016Q3

REPORT INFORMATION
  Report Type: Spontaneous
  Country: DE (occurrence: DE)
  Receive Date: 20160719
  Receipt Date: 20160719
  Transmission Date: 20161109
  Serious: Yes (Other)
  Sender: FDA-Public Use
  Company Number: DE-PFIZER INC-2016343802

PATIENT
  Sex: Male
  Weight: 2.68 kg

DRUGS (9)
  1. COLECALCIFEROL [Concomitant]
     Active Substance: CHOLECALCIFEROL
     Indication: VITAMIN D DEFICIENCY
     Dosage: 1000 IU, 1X/DAY 1 TRIMESTER 0. - 5. GESTATIONAL WEEK
     Route: 064
     Dates: start: 20150601, end: 20150706
  2. DEXAMETHASONE. [Concomitant]
     Active Substance: DEXAMETHASONE
     Indication: PROTEIN DEFICIENCY
     Dosage: 0.5 MG, 1X/DAY 1 TRIMESTER 0.3. - 6.2. GESTATIONAL WEEK
     Route: 064
     Dates: start: 20150604, end: 20150715
  3. BIOTIN [Concomitant]
     Active Substance: BIOTIN
     Indication: BIOTIN DEFICIENCY
     Dosage: 5 MG, 1X/DAY 1 TRIMESTER 0. - 39.4. GESTATIONAL WEEK
     Route: 064
     Dates: start: 20150601, end: 20160304
  4. FRAGMIN [Concomitant]
     Active Substance: DALTEPARIN SODIUM
     Indication: THROMBOSIS PROPHYLAXIS
     Dosage: 5000 IU, 1X/DAY 1 TRIMESTER 1.6. - 10.5. GESTATIONAL WEEK
     Route: 064
     Dates: start: 20150614, end: 20150815
  5. INFLUVAC [Concomitant]
     Active Substance: INFLUENZA VIRUS VACCINE
     Indication: IMMUNISATION
     Dosage: 2 TRIMESTER 16.5. - 16.5. GESTATIONAL WEEK
     Route: 064
     Dates: start: 20150926, end: 20150926
  6. VENLAFAXINE HCL [Suspect]
     Active Substance: VENLAFAXINE HYDROCHLORIDE
     Indication: DEPRESSION
     Dosage: 150 MG, 1X/DAY 1 TRIMESTER. 0. - 39.4. GESTATIONAL WEEK
     Route: 064
     Dates: start: 20150601, end: 20160304
  7. CRINONE [Concomitant]
     Active Substance: PROGESTERONE
     Indication: PROPHYLAXIS OF ABORTION
     Dosage: 1 TRIMESTER 2. - 15.1. GESTATIONAL WEEK
     Route: 064
     Dates: start: 20150615, end: 20150915
  8. FOLIO FORTE [Concomitant]
     Active Substance: FOLIC ACID\VITAMINS
     Indication: PROPHYLAXIS OF NEURAL TUBE DEFECT
     Dosage: 0.8 MG, 1X/DAY 1 TRIMESTER 0. - 39.4. GESTATIONAL WEEK
     Route: 064
     Dates: start: 20150601, end: 20160304
  9. PROGESTAN [Concomitant]
     Active Substance: PROGESTERONE
     Indication: PROPHYLAXIS OF ABORTION
     Dosage: 100 MG, 3X/DAY 1 TRIMESTER 2. - 15.1. GESTATIONAL WEEK
     Route: 064

REACTIONS (2)
  - Maternal exposure during pregnancy [Unknown]
  - Small for dates baby [Unknown]

NARRATIVE: CASE EVENT DATE: 20160304
